FAERS Safety Report 14700274 (Version 2)
Quarter: 2018Q2

REPORT INFORMATION
  Report Type: Report from Study
  Country: BR (occurrence: BR)
  Receive Date: 20180330
  Receipt Date: 20180406
  Transmission Date: 20180711
  Serious: Yes (Death, Hospitalization)
  Sender: FDA-Public Use
  Company Number: PHHY2018BR053717

PATIENT
  Age: 6 Year
  Sex: Female
  Weight: 23 kg

DRUGS (1)
  1. OMNITROPE [Suspect]
     Active Substance: SOMATROPIN
     Indication: BODY HEIGHT BELOW NORMAL
     Dosage: 0.6 OT, UNK (PEN 10 - DOSE 0.6)
     Route: 058
     Dates: end: 2017

REACTIONS (10)
  - Condition aggravated [Fatal]
  - Blood glucose increased [Fatal]
  - Pleural effusion [Fatal]
  - Cough [Fatal]
  - Dermatitis atopic [Fatal]
  - Pneumonia [Fatal]
  - Renal disorder [Fatal]
  - Blood pressure increased [Fatal]
  - Weight increased [Fatal]
  - Pyrexia [Fatal]

NARRATIVE: CASE EVENT DATE: 20180313
